FAERS Safety Report 5354676-5 (Version None)
Quarter: 2007Q2

REPORT INFORMATION
  Report Type: 
  Country: None (occurrence: None)
  Receive Date: 20070608
  Receipt Date: 20070524
  Transmission Date: 20071010
  Serious: Yes (Death)
  Sender: FDA-Public Use
  Company Number: 156814ISR

PATIENT

DRUGS (2)
  1. METHOTREXATE SODIUM [Suspect]
     Dosage: 2.5 MG ORAL
     Route: 048
  2. TRIMETHOPRIM [Suspect]

REACTIONS (1)
  - DRUG INTERACTION [None]
